FAERS Safety Report 16938356 (Version 2)
Quarter: 2019Q4

REPORT INFORMATION
  Report Type: Report from Study
  Country: AR (occurrence: AR)
  Receive Date: 20191019
  Receipt Date: 20191205
  Transmission Date: 20200122
  Serious: Yes (Other)
  Sender: FDA-Public Use
  Company Number: PHHY2019AR207508

PATIENT
  Age: 33 Year
  Sex: Female
  Weight: 61 kg

DRUGS (3)
  1. GILENYA [Suspect]
     Active Substance: FINGOLIMOD HYDROCHLORIDE
     Indication: MULTIPLE SCLEROSIS
     Dosage: 0.5 MG, QD
     Route: 065
     Dates: start: 201502, end: 20180618
  2. ESCADRA [Concomitant]
     Dosage: UNK, Q3W
     Route: 065
     Dates: start: 20190205, end: 20190415
  3. ESCADRA [Concomitant]
     Indication: PRODUCT USED FOR UNKNOWN INDICATION
     Dosage: UNK, Q3W
     Route: 065
     Dates: start: 20180618, end: 20181220

REACTIONS (3)
  - Maternal exposure before pregnancy [Unknown]
  - Multiple sclerosis relapse [Unknown]
  - Delivery [Unknown]

NARRATIVE: CASE EVENT DATE: 20181020
